FAERS Safety Report 22244725 (Version 1)
Quarter: 2023Q2

REPORT INFORMATION
  Report Type: Other
  Country: US (occurrence: None)
  Receive Date: 20230424
  Receipt Date: 20230424
  Transmission Date: 20230722
  Serious: Yes (Other)
  Sender: FDA-Public Use
  Company Number: US-ROCHE-3333790

PATIENT
  Age: 34 Year
  Sex: Female
  Weight: 56.750 kg

DRUGS (2)
  1. OCREVUS [Suspect]
     Active Substance: OCRELIZUMAB
     Indication: Relapsing-remitting multiple sclerosis
     Dosage: LAST DOSE- 03-JAN-2023
     Route: 042
     Dates: start: 201912
  2. PEPCID [Concomitant]
     Active Substance: FAMOTIDINE
     Route: 048

REACTIONS (6)
  - COVID-19 [Recovered/Resolved]
  - Blindness unilateral [Recovered/Resolved]
  - Muscular weakness [Recovered/Resolved]
  - Paraesthesia [Not Recovered/Not Resolved]
  - Bell^s palsy [Unknown]
  - Facial paresis [Unknown]

NARRATIVE: CASE EVENT DATE: 20230301
